FAERS Safety Report 9842195 (Version 2)
Quarter: 2014Q1

REPORT INFORMATION
  Report Type: Spontaneous
  Country: GR (occurrence: GR)
  Receive Date: 20140124
  Receipt Date: 20140204
  Transmission Date: 20141002
  Serious: Yes (Death, Other)
  Sender: FDA-Public Use
  Company Number: GR-GILEAD-2014-0092793

PATIENT
  Sex: Male

DRUGS (2)
  1. RANOLAZINE [Suspect]
     Indication: ANGINA PECTORIS
     Dosage: 375 MG, BID
     Route: 065
     Dates: start: 2013, end: 2013
  2. CLOPIDOGREL [Concomitant]

REACTIONS (2)
  - Death [Fatal]
  - Clonic convulsion [Recovered/Resolved]
